FAERS Safety Report 4838197-1 (Version None)
Quarter: 2005Q4

REPORT INFORMATION
  Report Type: 
  Country: None (occurrence: None)
  Receive Date: 20051123
  Receipt Date: 20051114
  Transmission Date: 20060501
  Serious: Yes (Hospitalization)
  Sender: FDA-Public Use
  Company Number: 2005157067

PATIENT
  Age: 13 Year
  Sex: Male
  Weight: 24 kg

DRUGS (3)
  1. GENOTONORM (SOMATROPIN) [Suspect]
     Indication: HYPOPITUITARISM
     Dosage: 0.8 MG (DAILY), SUBCUTANEOUS
     Route: 058
     Dates: start: 20001230
  2. LEVOTHYROXINE SODIUM [Concomitant]
  3. HYDROCORTISONE [Concomitant]

REACTIONS (6)
  - CEREBRAL VENTRICLE DILATATION [None]
  - EYELID PTOSIS [None]
  - FORAMEN MAGNUM STENOSIS [None]
  - HEMIPARESIS [None]
  - HYPOTONIA [None]
  - SYRINGOMYELIA [None]
